FAERS Safety Report 7810463-7 (Version None)
Quarter: 2011Q4

REPORT INFORMATION
  Report Type: 
  Country: None (occurrence: None)
  Receive Date: 20111012
  Receipt Date: 20110930
  Transmission Date: 20120403
  Serious: Yes (Hospitalization)
  Sender: FDA-Public Use
  Company Number: US-PFIZER INC-2011233814

PATIENT
  Age: 77 Year
  Sex: Female
  Weight: 60 kg

DRUGS (3)
  1. VELCADE [Suspect]
     Dosage: 2.171 MG, WEEKLY
     Dates: end: 20110923
  2. TEMSIROLIMUS [Suspect]
     Indication: MANTLE CELL LYMPHOMA
     Dosage: 25 MG, WEEKLY
     Route: 042
     Dates: start: 20110531, end: 20110923
  3. VELCADE [Suspect]
     Indication: MANTLE CELL LYMPHOMA
     Dosage: 2.736 MG, WEEKLY
     Route: 042
     Dates: start: 20110531

REACTIONS (2)
  - URINARY TRACT INFECTION [None]
  - UROSEPSIS [None]
